FAERS Safety Report 15819619 (Version 1)
Quarter: 2019Q1

REPORT INFORMATION
  Report Type: Spontaneous
  Country: GB (occurrence: GB)
  Receive Date: 20190114
  Receipt Date: 20190114
  Transmission Date: 20190417
  Serious: Yes (Other)
  Sender: FDA-Public Use
  Company Number: GB-TEVA-2019-GB-998329

PATIENT
  Age: 83 Year
  Sex: Female
  Weight: 71 kg

DRUGS (6)
  1. CLARITHROMYCIN. [Concomitant]
     Active Substance: CLARITHROMYCIN
     Dosage: 20 ML DAILY; FOR FOUR DAYS [TO COMPLETE 7D COURSE].  250MG/5ML
     Dates: start: 20181002
  2. CONOTRANE [Concomitant]
     Dates: start: 20181008
  3. FORTISIP [Concomitant]
     Active Substance: CARBOHYDRATES\FATTY ACIDS\MINERALS\PROTEIN\VITAMINS
     Dosage: 600 ML DAILY; VIA ENTERAL FEEDING TUBE ACBS
     Dates: start: 20180917
  4. TRIMETHOPRIM. [Suspect]
     Active Substance: TRIMETHOPRIM
     Indication: DIARRHOEA INFECTIOUS
     Dosage: 50MG/5ML
     Route: 048
  5. ROPINIROLE. [Concomitant]
     Active Substance: ROPINIROLE
     Indication: RESTLESS LEGS SYNDROME
     Dosage: 1 MILLIGRAM DAILY; CRUSHED INTO PEG
     Dates: start: 20181120
  6. XARELTO [Concomitant]
     Active Substance: RIVAROXABAN
     Indication: ANTICOAGULANT THERAPY
     Dosage: 15 MILLIGRAM DAILY;
     Dates: start: 20181204

REACTIONS (1)
  - Acute kidney injury [Recovering/Resolving]

NARRATIVE: CASE EVENT DATE: 20181206
